FAERS Safety Report 7007834-8 (Version None)
Quarter: 2010Q3

REPORT INFORMATION
  Report Type: 
  Country: None (occurrence: None)
  Receive Date: 20100922
  Receipt Date: 20100915
  Transmission Date: 20110219
  Serious: Yes (Life-Threatening)
  Sender: FDA-Public Use
  Company Number: CA-MERCK-1009USA03394

PATIENT
  Age: 40 Year
  Sex: Female
  Weight: 55 kg

DRUGS (2)
  1. SINGULAIR [Suspect]
     Route: 048
  2. OMNARIS [Concomitant]
     Route: 065

REACTIONS (6)
  - ABDOMINAL PAIN [None]
  - DIARRHOEA [None]
  - DRY MOUTH [None]
  - HOT FLUSH [None]
  - LOSS OF CONSCIOUSNESS [None]
  - VOMITING [None]
